FAERS Safety Report 21553872 (Version 1)
Quarter: 2022Q4

REPORT INFORMATION
  Report Type: Spontaneous
  Country: US (occurrence: US)
  Receive Date: 20221104
  Receipt Date: 20221104
  Transmission Date: 20230113
  Serious: No
  Sender: FDA-Public Use
  Company Number: US-BRISTOL-MYERS SQUIBB COMPANY-2022-132148

PATIENT
  Age: 80 Year
  Sex: Female

DRUGS (1)
  1. REVLIMID [Suspect]
     Active Substance: LENALIDOMIDE
     Indication: Myelodysplastic syndrome
     Dosage: 2.5 MG FOR?7 DAYS ON, 7 DAYS OFF (WAS 2.5 MG 21 DAYS ON, 7 DAYS OFF).
     Route: 048
     Dates: start: 20220907

REACTIONS (2)
  - Platelet count decreased [Unknown]
  - Contusion [Unknown]
